FAERS Safety Report 9834841 (Version 1)
Quarter: 2014Q1

REPORT INFORMATION
  Report Type: Spontaneous
  Country: US (occurrence: US)
  Receive Date: 20140122
  Receipt Date: 20140122
  Transmission Date: 20141002
  Serious: No
  Sender: FDA-Public Use
  Company Number: US-BAUSCH-BL-2013-002680

PATIENT
  Age: 49 Year
  Sex: Female
  Weight: 54.48 kg

DRUGS (2)
  1. ALAWAY (KETOTIFEN FUMARATE OPHTHALMIC SOLUTION) [Suspect]
     Indication: EYE PRURITUS
     Dosage: 1 DROP IN EACH EYE; TWICE DAILY; OPHTHALMIC
     Route: 047
     Dates: start: 20130501
  2. NAPROXEN [Concomitant]
     Indication: ANTIINFLAMMATORY THERAPY

REACTIONS (1)
  - Instillation site pain [Not Recovered/Not Resolved]
